FAERS Safety Report 15776738 (Version 1)
Quarter: 2018Q4

REPORT INFORMATION
  Report Type: Spontaneous
  Country: US (occurrence: US)
  Receive Date: 20181231
  Receipt Date: 20181231
  Transmission Date: 20190205
  Serious: No
  Sender: FDA-Public Use
  Company Number: US-PFIZER INC-2018535622

PATIENT
  Age: 58 Year
  Sex: Female

DRUGS (1)
  1. XELJANZ XR [Suspect]
     Active Substance: TOFACITINIB CITRATE
     Indication: RHEUMATOID ARTHRITIS
     Dosage: 11 MG, WEEKLY (ONCE A WEEK OR SO)

REACTIONS (7)
  - Tension headache [Unknown]
  - Blood cholesterol increased [Unknown]
  - Drug ineffective [Unknown]
  - Product use issue [Unknown]
  - Drug intolerance [Unknown]
  - Ocular hyperaemia [Unknown]
  - Product dose omission [Unknown]

NARRATIVE: CASE EVENT DATE: 20181219
